FAERS Safety Report 5690236-4 (Version None)
Quarter: 2008Q1

REPORT INFORMATION
  Report Type: 
  Country: None (occurrence: None)
  Receive Date: 20080331
  Receipt Date: 20080331
  Transmission Date: 20080703
  Serious: Yes (Other)
  Sender: FDA-Public Use
  Company Number: None

PATIENT
  Age: 62 Year
  Sex: Male
  Weight: 86.1834 kg

DRUGS (1)
  1. LEVAQUIN [Suspect]
     Indication: POSTOPERATIVE CARE
     Dosage: ONCE/DAY PO
     Route: 048
     Dates: start: 20080312, end: 20080313

REACTIONS (3)
  - ARTHRALGIA [None]
  - MYALGIA [None]
  - TENDON PAIN [None]
